FAERS Safety Report 11043888 (Version 1)
Quarter: 2015Q2

REPORT INFORMATION
  Report Type: Report from Study
  Country: BR (occurrence: BR)
  Receive Date: 20150417
  Receipt Date: 20150417
  Transmission Date: 20150821
  Serious: Yes (Death, Other)
  Sender: FDA-Public Use
  Company Number: PHHY2015BR043320

PATIENT
  Sex: Female
  Weight: 70 kg

DRUGS (1)
  1. EXELON [Suspect]
     Active Substance: RIVASTIGMINE TARTRATE
     Indication: MEMORY IMPAIRMENT
     Route: 048

REACTIONS (8)
  - Dementia [Fatal]
  - Respiratory failure [Fatal]
  - Bone fissure [Unknown]
  - Product use issue [Unknown]
  - Dementia Alzheimer^s type [Fatal]
  - Memory impairment [Fatal]
  - Condition aggravated [Fatal]
  - Asthenia [Unknown]

NARRATIVE: CASE EVENT DATE: 2009
